APPROVED DRUG PRODUCT: HYDROCORTISONE
Active Ingredient: HYDROCORTISONE
Strength: 2.5%
Dosage Form/Route: OINTMENT;TOPICAL
Application: A040310 | Product #001
Applicant: SUN PHARMA CANADA INC
Approved: Dec 29, 2000 | RLD: No | RS: No | Type: DISCN